FAERS Safety Report 11203325 (Version 1)
Quarter: 2015Q2

REPORT INFORMATION
  Report Type: Report from Study
  Country: FR (occurrence: FR)
  Receive Date: 20150619
  Receipt Date: 20150619
  Transmission Date: 20150821
  Serious: Yes (Hospitalization)
  Sender: FDA-Public Use
  Company Number: FR-GLAXOSMITHKLINE-FR2015GSK085162

PATIENT
  Age: 40 Year
  Sex: Male

DRUGS (12)
  1. SELOKEN [Concomitant]
     Active Substance: METOPROLOL
  2. AMLOR [Concomitant]
     Active Substance: AMLODIPINE BESYLATE
  3. KARDEGIC [Concomitant]
     Active Substance: ASPIRIN LYSINE
  4. GLYCERYL TRINITRATE [Concomitant]
     Active Substance: NITROGLYCERIN
  5. XANAX [Concomitant]
     Active Substance: ALPRAZOLAM
  6. OMEGA-3-ACID ETHYL ESTERS. [Suspect]
     Active Substance: OMEGA-3-ACID ETHYL ESTERS
     Indication: ISCHAEMIC HEART DISEASE PROPHYLAXIS
     Dosage: UNK
     Dates: start: 20080730
  7. TAHOR [Concomitant]
     Active Substance: ATORVASTATIN CALCIUM
  8. EZETROL [Concomitant]
     Active Substance: EZETIMIBE
  9. ATACAND [Concomitant]
     Active Substance: CANDESARTAN CILEXETIL
  10. ODRIK [Concomitant]
     Active Substance: TRANDOLAPRIL
  11. PLAVIX [Concomitant]
     Active Substance: CLOPIDOGREL BISULFATE
  12. DUOPLAVIN [Concomitant]
     Active Substance: ASPIRIN\CLOPIDOGREL

REACTIONS (1)
  - Dyspnoea exertional [Unknown]

NARRATIVE: CASE EVENT DATE: 20090502
